FAERS Safety Report 8509166-5 (Version None)
Quarter: 2012Q3

REPORT INFORMATION
  Report Type: 
  Country: None (occurrence: None)
  Receive Date: 20120713
  Receipt Date: 20120709
  Transmission Date: 20120928
  Serious: Yes (Hospitalization)
  Sender: FDA-Public Use
  Company Number: GB-GLAXOSMITHKLINE-Z0010648D

PATIENT
  Sex: Female
  Weight: 79.1 kg

DRUGS (4)
  1. DEXAMETHASONE [Concomitant]
     Indication: DECREASED APPETITE
     Dosage: 500MCG THREE TIMES PER DAY
     Route: 048
     Dates: start: 20120224
  2. OMEPRAZOLE [Concomitant]
     Indication: PROPHYLAXIS
     Dosage: 20MG PER DAY
     Route: 048
     Dates: start: 20090101
  3. CAPECITABINE [Suspect]
     Indication: BREAST CANCER METASTATIC
     Route: 048
     Dates: start: 20110630
  4. LAPATINIB [Suspect]
     Indication: BREAST CANCER METASTATIC
     Dosage: 1250MG PER DAY
     Route: 048
     Dates: start: 20110630

REACTIONS (4)
  - PYREXIA [None]
  - PRODUCTIVE COUGH [None]
  - BACK PAIN [None]
  - VOMITING [None]
